FAERS Safety Report 9369346 (Version 7)
Quarter: 2014Q1

REPORT INFORMATION
  Report Type: Spontaneous
  Country: GR (occurrence: GR)
  Receive Date: 20130626
  Receipt Date: 20140218
  Transmission Date: 20141002
  Serious: Yes (Other)
  Sender: FDA-Public Use
  Company Number: GR-AMGEN-GRCSP2013044138

PATIENT
  Age: 58 Year
  Sex: Female
  Weight: 71 kg

DRUGS (5)
  1. PROLIA [Suspect]
     Indication: OSTEOPOROSIS
     Dosage: 60 MG, Q6MO
     Route: 058
     Dates: start: 20120301
  2. CALCIORAL D3 [Concomitant]
     Indication: OSTEOPOROSIS
     Dosage: 1 X 1
     Route: 048
     Dates: start: 201203, end: 201203
  3. CALCITONIN [Concomitant]
     Dosage: UNK
     Dates: start: 2011
  4. ALPHA PLUS [Concomitant]
     Indication: OSTEOPOROSIS
     Dosage: 1 X 1
     Route: 048
     Dates: start: 201203, end: 20130716
  5. CALCET                             /00637401/ [Concomitant]
     Indication: OSTEOPOROSIS
     Dosage: 100 MG, 1
     Route: 048
     Dates: start: 20130716, end: 20130722

REACTIONS (6)
  - Abdominal distension [Recovering/Resolving]
  - Local swelling [Recovering/Resolving]
  - Cellulitis [Recovering/Resolving]
  - Osteonecrosis of jaw [Not Recovered/Not Resolved]
  - Lymphadenopathy [Unknown]
  - Bone pain [Unknown]
